FAERS Safety Report 7465396-5 (Version None)
Quarter: 2011Q2

REPORT INFORMATION
  Report Type: 
  Country: None (occurrence: None)
  Receive Date: 20110505
  Receipt Date: 20110505
  Transmission Date: 20111010
  Serious: Yes (Life-Threatening, Hospitalization)
  Sender: FDA-Public Use
  Company Number: None

PATIENT
  Age: 67 Year
  Sex: Male
  Weight: 72.1219 kg

DRUGS (12)
  1. COMTON [Concomitant]
  2. SEROQUEL XR [Concomitant]
  3. DESYREL [Concomitant]
  4. OLANZAPINE [Suspect]
     Indication: ABNORMAL BEHAVIOUR
     Dates: start: 20110317, end: 20110323
  5. ASPIRIN [Concomitant]
  6. ZYPREXA [Concomitant]
  7. ATIVAN [Concomitant]
  8. LEVOTHYROXINE SODIUM [Concomitant]
  9. DEPAKOTE [Concomitant]
  10. CATAPRES [Concomitant]
  11. SEROQUEL [Concomitant]
  12. ZOCOR [Concomitant]

REACTIONS (4)
  - TACHYCARDIA [None]
  - AGITATION [None]
  - PYREXIA [None]
  - NEUROLEPTIC MALIGNANT SYNDROME [None]
